FAERS Safety Report 21729107 (Version 1)
Quarter: 2022Q4

REPORT INFORMATION
  Report Type: Spontaneous
  Country: US (occurrence: US)
  Receive Date: 20221214
  Receipt Date: 20221214
  Transmission Date: 20230112
  Serious: No
  Sender: FDA-Public Use
  Company Number: US-PFIZER INC-202201364766

PATIENT
  Age: 74 Year
  Sex: Male

DRUGS (3)
  1. PAXLOVID [Interacting]
     Active Substance: NIRMATRELVIR\RITONAVIR
     Indication: COVID-19 treatment
     Dosage: UNK
     Dates: start: 20221129, end: 20221204
  2. ELIQUIS [Interacting]
     Active Substance: APIXABAN
     Dosage: UNK
     Dates: start: 201802, end: 20221129
  3. CALQUENCE [Concomitant]
     Active Substance: ACALABRUTINIB
     Dosage: UNK
     Dates: start: 201905, end: 20221129

REACTIONS (3)
  - COVID-19 [Unknown]
  - Disease recurrence [Unknown]
  - Drug interaction [Unknown]

NARRATIVE: CASE EVENT DATE: 20221129
